FAERS Safety Report 8953731 (Version 1)
Quarter: 2012Q4

REPORT INFORMATION
  Report Type: Report from Study
  Country: DE (occurrence: DE)
  Receive Date: 20121206
  Receipt Date: 20121206
  Transmission Date: 20130627
  Serious: Yes (Hospitalization)
  Sender: FDA-Public Use
  Company Number: DE-PFIZER INC-2012296194

PATIENT
  Age: 76 Year
  Sex: Male
  Weight: 93 kg

DRUGS (7)
  1. IRINOTECAN HCL [Suspect]
     Indication: METASTATIC COLORECTAL CANCER
     Dosage: 360 mg, cyclic, day 1 and 14
     Route: 042
     Dates: start: 20111205
  2. BEVACIZUMAB [Suspect]
     Indication: METASTATIC COLORECTAL CANCER
     Dosage: 465 mg, cyclic, day 1 and 14
     Route: 042
     Dates: start: 20111221
  3. FLUOROURACIL [Suspect]
     Indication: METASTATIC COLORECTAL CANCER
     Dosage: 4800 mg, cyclic, day 1 and 14
     Route: 042
     Dates: start: 20111205
  4. FLUOROURACIL [Suspect]
     Dosage: 800 mg, cyclic, day 1 and 14
     Route: 040
     Dates: start: 20111205
  5. FOLINIC ACID [Suspect]
     Indication: METASTATIC COLORECTAL CANCER
     Dosage: 800 mg, cyclic, day 1 and 14
     Route: 042
     Dates: start: 20111205
  6. RAMIPRIL [Concomitant]
     Indication: HYPERTENSION
     Dosage: 2.5 mg, 2x/day
     Route: 048
     Dates: start: 2010
  7. BISOPROLOL [Concomitant]
     Indication: HYPERTENSION
     Dosage: 2.5 mg, 1x/day
     Route: 048
     Dates: start: 2010

REACTIONS (4)
  - Pulmonary embolism [Recovered/Resolved]
  - Pulmonary infarction [Recovered/Resolved]
  - Pneumonia [Recovered/Resolved]
  - Deep vein thrombosis [Recovered/Resolved]
